FAERS Safety Report 26069027 (Version 1)
Quarter: 2025Q4

REPORT INFORMATION
  Report Type: Spontaneous
  Country: EU (occurrence: EU)
  Receive Date: 20251120
  Receipt Date: 20251120
  Transmission Date: 20260119
  Serious: Yes (Other)
  Sender: SAMSUNG BIOEPIS
  Company Number: EU-SAMSUNG BIOEPIS-SB-2025-38279

PATIENT
  Age: 78 Year
  Sex: Male
  Weight: 72 kg

DRUGS (7)
  1. IMRALDI [Suspect]
     Active Substance: ADALIMUMAB
     Indication: Colitis ulcerative
     Dosage: 160 MG LOADING DOSE, THEN 80 MG AT 2 WEEKS, FOLLOWED BY MAINTENANCE DOSE OF 40 MG EVERY 2 WEEKS,
     Route: 058
     Dates: end: 2025
  2. IMRALDI [Suspect]
     Active Substance: ADALIMUMAB
     Dosage: REINTRODUCTION;
     Dates: start: 2025
  3. MESALAMINE [Concomitant]
     Active Substance: MESALAMINE
     Indication: Product used for unknown indication
     Dosage: 2-0-2;
  4. PENTASA [Concomitant]
     Active Substance: MESALAMINE
     Indication: Product used for unknown indication
  5. VITAMIN D3 [Concomitant]
     Active Substance: CHOLECALCIFEROL
     Indication: Product used for unknown indication
  6. MEDROL [Concomitant]
     Active Substance: METHYLPREDNISOLONE
     Indication: Product used for unknown indication
     Dosage: WITH A GRADUAL DOSE REDUCTION OF 4 MG/WEEK;
  7. IMURAN [Concomitant]
     Active Substance: AZATHIOPRINE
     Indication: Colitis

REACTIONS (3)
  - Colitis ulcerative [Unknown]
  - Latent tuberculosis [Unknown]
  - Treatment noncompliance [Unknown]

NARRATIVE: CASE EVENT DATE: 20250401
